FAERS Safety Report 12775174 (Version 2)
Quarter: 2016Q4

REPORT INFORMATION
  Report Type: Spontaneous
  Country: JP (occurrence: JP)
  Receive Date: 20160923
  Receipt Date: 20161004
  Transmission Date: 20170207
  Serious: Yes (Other)
  Sender: FDA-Public Use
  Company Number: JP-AMGEN-JPNSP2016129237

PATIENT
  Age: 42 Year
  Sex: Male

DRUGS (5)
  1. NESP [Suspect]
     Active Substance: DARBEPOETIN ALFA
     Indication: PRODUCT USED FOR UNKNOWN INDICATION
     Dosage: 40 MUG, UNK
     Route: 042
  2. ALPHAGAN P [Concomitant]
     Active Substance: BRIMONIDINE TARTRATE
     Dosage: UNK, BID
     Route: 047
  3. MITOMYCIN C [Suspect]
     Active Substance: MITOMYCIN
     Indication: PRODUCT USED FOR UNKNOWN INDICATION
     Dosage: UNK
     Route: 047
  4. LUMIGAN [Concomitant]
     Active Substance: BIMATOPROST
     Dosage: UNK, QD
     Route: 047
  5. AZORGA [Concomitant]
     Active Substance: BRINZOLAMIDE\TIMOLOL MALEATE
     Dosage: UNK, BID
     Route: 047

REACTIONS (5)
  - Off label use [Unknown]
  - Flat anterior chamber of eye [Recovering/Resolving]
  - Choroidal detachment [Recovering/Resolving]
  - Hypotony of eye [Recovering/Resolving]
  - Corneal deposits [Unknown]
